FAERS Safety Report 4954619-X (Version None)
Quarter: 2006Q1

REPORT INFORMATION
  Report Type: 
  Country: None (occurrence: None)
  Receive Date: 20060327
  Receipt Date: 20060316
  Transmission Date: 20060701
  Serious: Yes (Hospitalization)
  Sender: FDA-Public Use
  Company Number: AU-ROCHE-440824

PATIENT
  Age: 21 Year
  Sex: Male
  Weight: 66 kg

DRUGS (2)
  1. DACLIZUMAB [Suspect]
     Indication: DRUG USE FOR UNKNOWN INDICATION
     Dosage: DOSAGE FREQUENCY WAS REPORTED AS CYCLICAL.
     Route: 065
     Dates: start: 20050720, end: 20050802
  2. DACLIZUMAB [Suspect]
     Route: 065
     Dates: start: 20050803, end: 20050831

REACTIONS (4)
  - HEPATITIS [None]
  - LOWER RESPIRATORY TRACT INFECTION [None]
  - MYOCARDITIS [None]
  - PERICARDITIS [None]
